FAERS Safety Report 10749177 (Version 1)
Quarter: 2015Q1

REPORT INFORMATION
  Report Type: Spontaneous
  Country: US (occurrence: US)
  Receive Date: 20150129
  Receipt Date: 20150129
  Transmission Date: 20150721
  Serious: Yes (Other)
  Sender: FDA-Public Use
  Company Number: US-BANPHARM-20153371

PATIENT
  Age: 62 Year
  Sex: Female
  Weight: 68.95 kg

DRUGS (1)
  1. ALEVE [Suspect]
     Active Substance: NAPROXEN SODIUM
     Indication: ARTHRITIS
     Dosage: 2 DF, PRN,
     Route: 048
     Dates: start: 1995, end: 20150109

REACTIONS (5)
  - Hepatic cyst [Recovered/Resolved]
  - Renal cyst [Not Recovered/Not Resolved]
  - Hepatic lesion [Recovered/Resolved]
  - Blood alkaline phosphatase increased [Not Recovered/Not Resolved]
  - Hepatic enzyme increased [Not Recovered/Not Resolved]

NARRATIVE: CASE EVENT DATE: 1999
